FAERS Safety Report 19969744 (Version 1)
Quarter: 2021Q4

REPORT INFORMATION
  Report Type: Spontaneous
  Country: BR (occurrence: BR)
  Receive Date: 20211019
  Receipt Date: 20211019
  Transmission Date: 20220303
  Serious: Yes (Hospitalization)
  Sender: FDA-Public Use
  Company Number: BR-PFIZER INC-202101332834

PATIENT
  Age: 58 Year
  Sex: Male

DRUGS (7)
  1. ATORVASTATIN CALCIUM [Suspect]
     Active Substance: ATORVASTATIN CALCIUM
     Dosage: 40 MG, DAILY
     Dates: start: 2015
  2. ATORVASTATIN CALCIUM [Suspect]
     Active Substance: ATORVASTATIN CALCIUM
     Dosage: UNK, DAILY (80MG ATORVASTATIN, SPLIT IN HALF, AND USE HALF A TABLET A DAY)
  3. METOPROLOL [Concomitant]
     Active Substance: METOPROLOL
  4. ENALAPRIL [Concomitant]
     Active Substance: ENALAPRIL
  5. CAPTOPRIL [Concomitant]
     Active Substance: CAPTOPRIL
  6. ASPIRIN [Concomitant]
     Active Substance: ASPIRIN
  7. ASPIRIN\DIHYDROXYALUMINUM AMINOACETATE ANHYDROUS\MAGNESIUM CARBONATE [Concomitant]
     Active Substance: ASPIRIN\DIHYDROXYALUMINUM AMINOACETATE ANHYDROUS\MAGNESIUM CARBONATE

REACTIONS (2)
  - Infarction [Unknown]
  - Wrong technique in product usage process [Unknown]

NARRATIVE: CASE EVENT DATE: 20210801
